FAERS Safety Report 23321950 (Version 2)
Quarter: 2024Q1

REPORT INFORMATION
  Report Type: Spontaneous
  Country: AR (occurrence: AR)
  Receive Date: 20231220
  Receipt Date: 20240102
  Transmission Date: 20240409
  Serious: Yes (Hospitalization)
  Sender: FDA-Public Use
  Company Number: AR-002147023-NVSC2023AR266560

PATIENT
  Age: 72 Year
  Sex: Female

DRUGS (8)
  1. LESCOL XL [Suspect]
     Active Substance: FLUVASTATIN SODIUM
     Indication: Blood cholesterol
     Dosage: 80 MG, QD
     Route: 048
  2. LESCOL XL [Suspect]
     Active Substance: FLUVASTATIN SODIUM
     Dosage: 80 MG, 80 MG, EVERY OTHER DAY
     Route: 048
  3. CLONAZEPAM [Concomitant]
     Active Substance: CLONAZEPAM
     Indication: Product used for unknown indication
     Route: 065
  4. ESZOPICLONE [Concomitant]
     Active Substance: ESZOPICLONE
     Indication: Product used for unknown indication
     Route: 065
  5. GADOFEROL [Concomitant]
     Indication: Product used for unknown indication
     Dosage: UNK (CB100,000)
     Route: 065
  6. LOSARTAN [Concomitant]
     Active Substance: LOSARTAN
     Indication: Product used for unknown indication
     Route: 065
  7. LOSARTAN [Concomitant]
     Active Substance: LOSARTAN
     Indication: Product used for unknown indication
     Route: 065
  8. OMEPRAZOLE [Concomitant]
     Active Substance: OMEPRAZOLE
     Indication: Product used for unknown indication
     Route: 065

REACTIONS (13)
  - Herpes zoster [Unknown]
  - Malaise [Unknown]
  - Intervertebral disc protrusion [Unknown]
  - Drug intolerance [Unknown]
  - Bone pain [Recovered/Resolved]
  - Muscle fatigue [Unknown]
  - Blood cholesterol increased [Unknown]
  - Spinal pain [Not Recovered/Not Resolved]
  - Lumbar hernia [Unknown]
  - Dysuria [Unknown]
  - Myalgia [Unknown]
  - Incorrect dose administered [Unknown]
  - Inappropriate schedule of product administration [Unknown]

NARRATIVE: CASE EVENT DATE: 20231201
